FAERS Safety Report 11217728 (Version 1)
Quarter: 2015Q2

REPORT INFORMATION
  Report Type: Spontaneous
  Country: FR (occurrence: FR)
  Receive Date: 20150625
  Receipt Date: 20150625
  Transmission Date: 20150821
  Serious: Yes (Hospitalization)
  Sender: FDA-Public Use
  Company Number: FR-009507513-1506FRA009054

PATIENT
  Sex: Female

DRUGS (2)
  1. SINEMET L.P. [Suspect]
     Active Substance: CARBIDOPA\LEVODOPA
     Dosage: AT 7 PM
     Route: 048
  2. SINEMET L.P. [Suspect]
     Active Substance: CARBIDOPA\LEVODOPA
     Dosage: THREE TIMES A DAY
     Route: 048

REACTIONS (2)
  - Surgery [Unknown]
  - Post procedural complication [Unknown]
